FAERS Safety Report 23669231 (Version 1)
Quarter: 2024Q1

REPORT INFORMATION
  Report Type: Spontaneous
  Country: US (occurrence: US)
  Receive Date: 20240325
  Receipt Date: 20240325
  Transmission Date: 20240410
  Serious: No
  Sender: FDA-Public Use
  Company Number: US-PFIZER INC-202400068596

PATIENT
  Age: 1 Year
  Sex: Male
  Weight: 17.24 kg

DRUGS (2)
  1. EUCRISA [Suspect]
     Active Substance: CRISABOROLE
     Indication: Eczema
     Dosage: TOPICAL, TWICE A DAY, ON AREAS OF ECZEMA, STRENGTH IS 2%
     Route: 061
     Dates: start: 202208
  2. TACROLIMUS [Concomitant]
     Active Substance: TACROLIMUS
     Indication: Eczema
     Dosage: OINTMENT, ON AREAS OF ECZEMA, TWICE A DAY, 0.03%
     Route: 061
     Dates: start: 202402

REACTIONS (1)
  - Skin burning sensation [Not Recovered/Not Resolved]

NARRATIVE: CASE EVENT DATE: 20230101
